FAERS Safety Report 25516943 (Version 1)
Quarter: 2025Q3

REPORT INFORMATION
  Report Type: Spontaneous
  Country: GB (occurrence: GB)
  Receive Date: 20250704
  Receipt Date: 20250704
  Transmission Date: 20251020
  Serious: Yes (Other)
  Sender: TEVA
  Company Number: GB-MHRA-TPP19205562C23871585YC1750757652553

PATIENT
  Age: 40 Year
  Sex: Male
  Weight: 88 kg

DRUGS (19)
  1. DOXYCYCLINE [Suspect]
     Active Substance: DOXYCYCLINE
     Indication: Ill-defined disorder
     Route: 065
     Dates: start: 20250624
  2. COCODAMOL [Concomitant]
     Active Substance: ACETAMINOPHEN\CODEINE PHOSPHATE
     Indication: Ill-defined disorder
     Dosage: ONE TO BE TAKEN FOUR TIMES A DAY, 4 DOSAGE FORMS DAILY
     Dates: start: 20250612
  3. PROPRANOLOL [Concomitant]
     Active Substance: PROPRANOLOL HYDROCHLORIDE
     Indication: Ill-defined disorder
     Dates: start: 20241101
  4. FEXOFENADINE [Concomitant]
     Active Substance: FEXOFENADINE HYDROCHLORIDE
     Indication: Ill-defined disorder
     Dosage: ONE TO BE TAKEN EACH DAY, 1 DOSAGE FORMS DAILY, DURATION: 31 DAYS
     Dates: start: 20250430, end: 20250530
  5. DEXTROAMPHETAMINE [Concomitant]
     Active Substance: DEXTROAMPHETAMINE
     Indication: Ill-defined disorder
     Dates: start: 20250110
  6. SUMATRIPTAN [Concomitant]
     Active Substance: SUMATRIPTAN
     Indication: Ill-defined disorder
     Dates: start: 20250424, end: 20250522
  7. FLUTICASONE FUROATE [Concomitant]
     Active Substance: FLUTICASONE FUROATE
     Indication: Ill-defined disorder
     Dosage: USE TWO SPRAYS TO BE USED IN EACH NOSTRIL ONCE A DAY, 4 DOSAGE FORMS DAILY
     Route: 045
     Dates: start: 20250612
  8. DIHYDROCODEINE [Concomitant]
     Active Substance: DIHYDROCODEINE
     Indication: Ill-defined disorder
     Dosage: ONE TO BE TAKEN FOUR TIMES A DAY WHEN REQUIRED, 4 DOSAGE FORMS DAILY
     Dates: start: 20250612
  9. TOPIRAMATE [Concomitant]
     Active Substance: TOPIRAMATE
     Indication: Ill-defined disorder
     Dosage: TAKE ONE NIGHT FOR 1 WEEKS THEN INCREASE TO TWO..., 1 DOSAGE FORMS DAILY
     Dates: start: 20250307
  10. FAMOTIDINE [Concomitant]
     Active Substance: FAMOTIDINE
     Indication: Ill-defined disorder
     Dosage: TAKE ONE A DAY STOP 24-48 HOURS PRIOR TO H PYLORI., 1 DOSAGE FORMS DAILY, DURATION?29 DAYS
     Dates: start: 20250424, end: 20250522
  11. CLARITHROMYCIN [Concomitant]
     Active Substance: CLARITHROMYCIN
     Indication: Ill-defined disorder
     Dosage: TAKE ONE EVERY 12 HRS, 2 DOSAGE FORMS DAILY
     Dates: start: 20250624
  12. ETORICOXIB [Concomitant]
     Active Substance: ETORICOXIB
     Indication: Ill-defined disorder
     Dosage: TAKE ONE ONCE DAILY, 1 DOSAGE FORMS DAILY
     Dates: start: 20250604
  13. MOUNJARO [Concomitant]
     Active Substance: TIRZEPATIDE
     Indication: Ill-defined disorder
     Dates: start: 20250616
  14. DOMPERIDONE [Concomitant]
     Active Substance: DOMPERIDONE
     Indication: Ill-defined disorder
     Dates: start: 20250424, end: 20250522
  15. PREGABALIN [Concomitant]
     Active Substance: PREGABALIN
     Indication: Ill-defined disorder
     Dosage: 300MG BD, 600 MG DAILY
     Dates: start: 20241101
  16. ESOMEPRAZOLE [Concomitant]
     Active Substance: ESOMEPRAZOLE
     Indication: Ill-defined disorder
     Dosage: ONE BD, 2 DOSAGE FORMS DAILY
     Dates: start: 20241101
  17. NAPROXEN [Concomitant]
     Active Substance: NAPROXEN
     Indication: Ill-defined disorder
     Dosage: ONE TO BE TAKEN TWICE A DAY AS AND WHEN REQUIRED, 2 DOSAGE FORMS DAILY, DURATION: 29 DAYS
     Dates: start: 20250424, end: 20250522
  18. ZOPICLONE [Concomitant]
     Active Substance: ZOPICLONE
     Indication: Ill-defined disorder
     Dosage: TAKE ONE AT NIGHT FOR A WEEK PER MONTH, 1 DOSAGE FORMS DAILY
     Dates: start: 20240926
  19. AMITRIPTYLINE HYDROCHLORIDE [Concomitant]
     Active Substance: AMITRIPTYLINE HYDROCHLORIDE
     Indication: Ill-defined disorder
     Dates: start: 20250612

REACTIONS (1)
  - Penile exfoliation [Recovered/Resolved]

NARRATIVE: CASE EVENT DATE: 20250624
